FAERS Safety Report 6812366-3 (Version None)
Quarter: 2010Q3

REPORT INFORMATION
  Report Type: 
  Country: None (occurrence: None)
  Receive Date: 20100701
  Receipt Date: 20100621
  Transmission Date: 20110219
  Serious: Yes (Other)
  Sender: FDA-Public Use
  Company Number: DE-JNJFOC-20100605751

PATIENT
  Sex: Female
  Weight: 52 kg

DRUGS (5)
  1. REMICADE [Suspect]
     Indication: CROHN'S DISEASE
     Dosage: A TOTAL OF 5 INFUSIONS
     Route: 042
  2. CORTISONE [Concomitant]
     Indication: PREMEDICATION
  3. PREDNISONE TAB [Concomitant]
     Indication: PREMEDICATION
     Route: 042
  4. DIMETINDEN MALEATE [Concomitant]
     Indication: PREMEDICATION
     Route: 048
  5. ACETAMINOPHEN [Concomitant]
     Indication: PREMEDICATION
     Route: 048

REACTIONS (3)
  - BLOOD PRESSURE DECREASED [None]
  - INFUSION RELATED REACTION [None]
  - INTESTINAL OPERATION [None]
